FAERS Safety Report 11283400 (Version 2)
Quarter: 2016Q3

REPORT INFORMATION
  Report Type: Report from Study
  Country: DE (occurrence: DE)
  Receive Date: 20150720
  Receipt Date: 20160727
  Transmission Date: 20161109
  Serious: Yes (Other)
  Sender: FDA-Public Use
  Company Number: PHHY2015DE082377

PATIENT
  Age: 38 Year
  Sex: Female

DRUGS (7)
  1. TRIMIPRAMINE [Concomitant]
     Active Substance: TRIMIPRAMINE
     Indication: SLEEP DISORDER
     Dosage: 20 DRP, QD 1X20
     Route: 048
     Dates: start: 20140325
  2. GILENYA [Suspect]
     Active Substance: FINGOLIMOD HYDROCHLORIDE
     Indication: MULTIPLE SCLEROSIS
     Dosage: 0.5 MG, BID
     Route: 048
     Dates: start: 20101125, end: 20110519
  3. SPASMEX [Concomitant]
     Active Substance: TROSPIUM CHLORIDE
     Dosage: 45 MG, QD
     Route: 048
     Dates: start: 20140325
  4. SPASMEX [Concomitant]
     Active Substance: TROSPIUM CHLORIDE
     Dosage: 15 MG, QD
     Route: 048
     Dates: start: 20140325
  5. GILENYA [Suspect]
     Active Substance: FINGOLIMOD HYDROCHLORIDE
     Dosage: 0.5 MG, QD
     Route: 048
     Dates: start: 20121009, end: 20121018
  6. SPASMEX [Concomitant]
     Active Substance: TROSPIUM CHLORIDE
     Indication: URGE INCONTINENCE
     Dosage: 30 MG, QD
     Route: 065
     Dates: start: 20120730
  7. GILENYA [Suspect]
     Active Substance: FINGOLIMOD HYDROCHLORIDE
     Dosage: 0.5 MG, QD
     Route: 048
     Dates: start: 20121019

REACTIONS (5)
  - Developmental hip dysplasia [Not Recovered/Not Resolved]
  - Off label use [Unknown]
  - Hypokinesia [Not Recovered/Not Resolved]
  - Arthralgia [Not Recovered/Not Resolved]
  - Prescribed overdose [Unknown]

NARRATIVE: CASE EVENT DATE: 20101125
